FAERS Safety Report 16098471 (Version 1)
Quarter: 2019Q1

REPORT INFORMATION
  Report Type: Spontaneous
  Country: GB (occurrence: GB)
  Receive Date: 20190321
  Receipt Date: 20190321
  Transmission Date: 20190418
  Serious: Yes (Hospitalization)
  Sender: FDA-Public Use
  Company Number: GB-TEVA-2019-GB-1025991

PATIENT
  Age: 52 Year
  Sex: Female
  Weight: 96.2 kg

DRUGS (11)
  1. CLOPIDOGREL [Suspect]
     Active Substance: CLOPIDOGREL BISULFATE
     Dosage: 75 MILLIGRAM DAILY;
     Route: 048
     Dates: start: 20180401
  2. NUROFEN [Suspect]
     Active Substance: IBUPROFEN
     Indication: PAIN
     Route: 065
  3. AMOXICILLIN. [Suspect]
     Active Substance: AMOXICILLIN
     Indication: PNEUMONIA
     Dosage: UNKNOWN
     Route: 048
     Dates: start: 20190211
  4. VENLAFAXINE [Suspect]
     Active Substance: VENLAFAXINE HYDROCHLORIDE
     Indication: DEPRESSION
     Dosage: 300 MILLIGRAM DAILY;
     Route: 048
     Dates: start: 20181126
  5. RANITIDINE. [Suspect]
     Active Substance: RANITIDINE
     Dosage: 300 MILLIGRAM DAILY;
     Route: 048
     Dates: start: 20180401
  6. LAXIDO [Suspect]
     Active Substance: POLYETHYLENE GLYCOL 3350\POTASSIUM CHLORIDE\SODIUM BICARBONATE\SODIUM CHLORIDE
     Route: 065
  7. PARACETAMOL [Suspect]
     Active Substance: ACETAMINOPHEN
     Indication: PYREXIA
     Route: 048
  8. ZAPONEX [Suspect]
     Active Substance: CLOZAPINE
     Indication: SCHIZOPHRENIA
     Dosage: 100 MILLIGRAM DAILY;
     Route: 048
     Dates: start: 20180125, end: 20190215
  9. GLANDOSANE [Concomitant]
     Active Substance: CALCIUM\CARBOXYMETHYLCELLULOSE\DEVICE\MAGNESIUM\POTASSIUM\SODIUM CL\SORBITOL
  10. ACIDEX [Concomitant]
     Active Substance: CALCIUM CARBONATE\SODIUM ALGINATE\SODIUM BICARBONATE
  11. LAMOTRIGINE. [Suspect]
     Active Substance: LAMOTRIGINE
     Indication: SEIZURE
     Dosage: 25 MILLIGRAM DAILY; NIGHT
     Route: 048
     Dates: start: 20190212

REACTIONS (1)
  - Neutropenia [Recovered/Resolved]

NARRATIVE: CASE EVENT DATE: 20190213
